FAERS Safety Report 7928625-7 (Version None)
Quarter: 2011Q4

REPORT INFORMATION
  Report Type: 
  Country: None (occurrence: None)
  Receive Date: 20111118
  Receipt Date: 20111109
  Transmission Date: 20120403
  Serious: Yes (Hospitalization)
  Sender: FDA-Public Use
  Company Number: JP-MPIJNJ-2011-05081

PATIENT

DRUGS (13)
  1. SUCRALFATE [Concomitant]
     Indication: BRONCHIOLITIS
     Dosage: 30 ML, TID
     Route: 048
     Dates: start: 20110723, end: 20110825
  2. DOXORUBICIN HCL [Suspect]
     Dosage: 36 MCI, UNK
     Route: 042
     Dates: start: 20110916, end: 20110916
  3. PANTOSIN [Concomitant]
     Dosage: 300 MG, TID
     Route: 048
  4. SUNRYTHM [Concomitant]
     Dosage: 75 MG, TID
     Dates: end: 20111011
  5. MAGMITT [Concomitant]
     Dosage: 990 MG, TID
     Route: 048
     Dates: start: 20110816, end: 20111004
  6. TAVEGYL                            /00137201/ [Concomitant]
     Indication: BRONCHIOLITIS
     Dosage: 2 MG, BID
     Route: 048
     Dates: start: 20110825, end: 20111004
  7. VELCADE [Suspect]
     Indication: MULTIPLE MYELOMA
     Dosage: 2 MG, UNK
     Route: 042
     Dates: start: 20110712, end: 20110722
  8. VELCADE [Suspect]
     Dosage: 1.6 UNK, UNK
     Route: 042
     Dates: start: 20110812, end: 20110923
  9. DOXORUBICIN HCL [Suspect]
     Indication: MULTIPLE MYELOMA
     Dosage: 47 MG, UNK
     Route: 042
     Dates: start: 20110715, end: 20110715
  10. DOXORUBICIN HCL [Suspect]
     Dosage: 36 UNK, UNK
     Route: 042
     Dates: start: 20110815, end: 20110815
  11. ZOVIRAX                            /00587301/ [Concomitant]
     Dosage: 200 MG, UNK
     Route: 048
     Dates: start: 20110804, end: 20111004
  12. XALATAN [Concomitant]
     Dosage: 1 DF, UNK
     Route: 031
  13. OLOPATADINE HCL [Concomitant]
     Indication: BRONCHIOLITIS
     Dosage: 10 MG, BID
     Route: 048
     Dates: start: 20110722, end: 20111004

REACTIONS (1)
  - BRONCHIOLITIS [None]
